FAERS Safety Report 5520207-X (Version None)
Quarter: 2007Q4

REPORT INFORMATION
  Report Type: 
  Country: None (occurrence: None)
  Receive Date: 20071116
  Receipt Date: 20071113
  Transmission Date: 20080405
  Serious: Yes (Death, Other)
  Sender: FDA-Public Use
  Company Number: US-ABBOTT-07P-163-0424519-00

PATIENT
  Age: 31 Year
  Sex: Male

DRUGS (3)
  1. ULTANE [Suspect]
     Indication: DRUG USE FOR UNKNOWN INDICATION
  2. CALCIUM CARBONATE [Concomitant]
     Indication: DYSPEPSIA
     Dosage: NOT REPORTED
  3. CALCIUM CARBONATE [Concomitant]
     Indication: GASTRITIS

REACTIONS (1)
  - DRUG TOXICITY [None]
